FAERS Safety Report 12809961 (Version 1)
Quarter: 2016Q4

REPORT INFORMATION
  Report Type: Spontaneous
  Country: US (occurrence: US)
  Receive Date: 20161004
  Receipt Date: 20161004
  Transmission Date: 20170207
  Serious: Yes (Hospitalization)
  Sender: FDA-Public Use
  Company Number: None

PATIENT
  Age: 81 Year
  Sex: Male
  Weight: 76.5 kg

DRUGS (12)
  1. XARELTO [Suspect]
     Active Substance: RIVAROXABAN
     Indication: ATRIAL FLUTTER
     Route: 048
     Dates: start: 20160909, end: 20161001
  2. METOPROLOL SUCCINATE. [Concomitant]
     Active Substance: METOPROLOL SUCCINATE
  3. TRAZODONE [Concomitant]
     Active Substance: TRAZODONE HYDROCHLORIDE
  4. LISINOPRIL. [Concomitant]
     Active Substance: LISINOPRIL
  5. MULTIVITAMIN [Concomitant]
     Active Substance: VITAMINS
  6. ATORVASTATIN [Concomitant]
     Active Substance: ATORVASTATIN
  7. ASPIRN [Concomitant]
     Active Substance: ASPIRIN
  8. ALLOPURINOL. [Concomitant]
     Active Substance: ALLOPURINOL
  9. TIMOPTIC OPTHALMIC SOLUTION [Concomitant]
  10. FUROSEMIDE. [Concomitant]
     Active Substance: FUROSEMIDE
  11. XALATAN [Concomitant]
     Active Substance: LATANOPROST
  12. AMLODIPINE [Concomitant]
     Active Substance: AMLODIPINE BESYLATE

REACTIONS (5)
  - Hypotension [None]
  - Haemoglobin decreased [None]
  - Metabolic acidosis [None]
  - Hyperkalaemia [None]
  - Renal haemorrhage [None]

NARRATIVE: CASE EVENT DATE: 20161002
